FAERS Safety Report 8387598-6 (Version None)
Quarter: 2012Q2

REPORT INFORMATION
  Report Type: 
  Country: None (occurrence: None)
  Receive Date: 20120525
  Receipt Date: 20120516
  Transmission Date: 20120825
  Serious: No
  Sender: FDA-Public Use
  Company Number: BR-B.I. PHARMACEUTICALS,INC./RIDGEFIELD-2012-BR-00494BR

PATIENT
  Age: 53 Year
  Sex: Male

DRUGS (2)
  1. TRAYENTA [Suspect]
     Indication: TYPE 2 DIABETES MELLITUS
     Dosage: 5 MG
     Route: 048
  2. UNKNOWN HYPERTENSION DRUG [Concomitant]

REACTIONS (2)
  - URTICARIA [None]
  - PRURITUS [None]
